FAERS Safety Report 6636660-4 (Version None)
Quarter: 2010Q1

REPORT INFORMATION
  Report Type: 
  Country: None (occurrence: None)
  Receive Date: 20100316
  Receipt Date: 20100308
  Transmission Date: 20100710
  Serious: Yes (Hospitalization)
  Sender: FDA-Public Use
  Company Number: A0849857A

PATIENT
  Age: 57 Year
  Sex: Female
  Weight: 159.1 kg

DRUGS (1)
  1. AVANDIA [Suspect]
     Route: 048
     Dates: start: 20030901, end: 20050501

REACTIONS (3)
  - BLOOD PRESSURE INCREASED [None]
  - CONDUCTION DISORDER [None]
  - HEART RATE DECREASED [None]
